FAERS Safety Report 4543233-6 (Version None)
Quarter: 2005Q1

REPORT INFORMATION
  Report Type: 
  Country: None (occurrence: None)
  Receive Date: 20050103
  Receipt Date: 20041109
  Transmission Date: 20050727
  Serious: Yes (Hospitalization, Other)
  Sender: FDA-Public Use
  Company Number: FR-BRISTOL-MYERS SQUIBB COMPANY-12760971

PATIENT
  Age: 61 Year
  Sex: Female

DRUGS (12)
  1. TAXOL [Suspect]
     Indication: OVARIAN CANCER
     Route: 042
     Dates: start: 20041102, end: 20041102
  2. CARBOPLATIN [Suspect]
     Indication: OVARIAN CANCER
     Route: 042
     Dates: start: 20041102, end: 20041102
  3. TRANXENE [Suspect]
     Route: 042
     Dates: start: 20041102, end: 20041102
  4. RANITIDINE [Suspect]
     Indication: PREMEDICATION
     Route: 042
     Dates: start: 20041102, end: 20041102
  5. ZOPHREN [Suspect]
     Indication: PREMEDICATION
     Route: 042
     Dates: start: 20041102, end: 20041102
  6. SOLU-MEDROL [Suspect]
     Indication: PREMEDICATION
     Route: 042
     Dates: start: 20041102, end: 20041102
  7. ZOLPIDEM TARTRATE [Concomitant]
  8. LEXOMIL [Concomitant]
  9. DAFALGAN [Concomitant]
  10. SMECTA [Concomitant]
  11. BECOTIDE [Concomitant]
  12. IMODIUM [Concomitant]
     Indication: DIARRHOEA

REACTIONS (2)
  - ATRIOVENTRICULAR BLOCK [None]
  - SYNCOPE [None]
